FAERS Safety Report 5720495-0 (Version None)
Quarter: 2008Q2

REPORT INFORMATION
  Report Type: 
  Country: None (occurrence: None)
  Receive Date: 20080428
  Receipt Date: 20080416
  Transmission Date: 20081010
  Serious: Yes (Other)
  Sender: FDA-Public Use
  Company Number: CO-PFIZER INC-2008035537

PATIENT
  Sex: Male

DRUGS (5)
  1. DETRUSITOL SR [Suspect]
     Route: 048
     Dates: start: 20080409, end: 20080416
  2. LOVASTATIN [Concomitant]
  3. OMEPRAZOLE [Concomitant]
  4. ALL OTHER THERAPEUTIC PRODUCTS [Concomitant]
  5. REMERON [Concomitant]

REACTIONS (2)
  - EYE SWELLING [None]
  - OEDEMA PERIPHERAL [None]
